FAERS Safety Report 21182675 (Version 1)
Quarter: 2022Q3

REPORT INFORMATION
  Report Type: Spontaneous
  Country: BR (occurrence: BR)
  Receive Date: 20220808
  Receipt Date: 20220808
  Transmission Date: 20221026
  Serious: Yes (Other)
  Sender: FDA-Public Use
  Company Number: BR-CADILA HEALTHCARE LIMITED-BR-ZYDUS-081087

PATIENT

DRUGS (2)
  1. PAROXETINE [Suspect]
     Active Substance: PAROXETINE
     Indication: Depression
     Dosage: 20 MILLIGRAM
     Route: 065
  2. AMITRIPTYLINE [Suspect]
     Active Substance: AMITRIPTYLINE
     Indication: Antidepressant therapy
     Dosage: 50 MILLIGRAM
     Route: 065

REACTIONS (2)
  - Rapid eye movement sleep behaviour disorder [Recovered/Resolved]
  - Hypnagogic hallucination [Recovered/Resolved]
